FAERS Safety Report 8314008-7 (Version None)
Quarter: 2012Q2

REPORT INFORMATION
  Report Type: 
  Country: None (occurrence: None)
  Receive Date: 20120426
  Receipt Date: 20120418
  Transmission Date: 20120825
  Serious: Yes (Hospitalization)
  Sender: FDA-Public Use
  Company Number: US-BAYER-2011-114198

PATIENT
  Age: 50 Year
  Sex: Female
  Weight: 93 kg

DRUGS (14)
  1. WARFARIN SODIUM [Concomitant]
     Dosage: UNK
     Dates: start: 20060101
  2. MISOPROSTOL [Concomitant]
     Dosage: UNK
     Dates: start: 20060101
  3. FUROSEMIDE [Concomitant]
     Dosage: UNK
     Dates: start: 20060101
  4. OSMOPREP [Concomitant]
     Dosage: UNK
     Dates: start: 20060101
  5. DROSPIRENONE AND ETHINYL ESTRADIOL [Suspect]
     Indication: MENSTRUATION IRREGULAR
     Dosage: UNK
     Dates: start: 20090201, end: 20090421
  6. VITAMIN D [Concomitant]
     Dosage: UNK
     Dates: start: 20060101
  7. TRAMADOL HCL [Concomitant]
     Dosage: UNK
     Dates: start: 20060101
  8. LYRICA [Concomitant]
     Dosage: UNK
     Dates: start: 20060101
  9. AMITIZA [Concomitant]
     Dosage: UNK
     Dates: start: 20060101
  10. NAPROXEN (ALEVE) [Concomitant]
     Dosage: UNK UNK, PRN (AS NEEDED)
  11. ASCORBIC ACID [Concomitant]
     Indication: SUPPLEMENTATION THERAPY
  12. POTASSIUM CHLORIDE [Concomitant]
     Dosage: UNK
     Dates: start: 20090401
  13. EXTENDRYL [Concomitant]
     Dosage: UNK
     Dates: start: 20060101
  14. FLURBIPROFEN [Concomitant]
     Dosage: UNK
     Dates: start: 20060101

REACTIONS (6)
  - EMOTIONAL DISTRESS [None]
  - PULMONARY EMBOLISM [None]
  - ANXIETY [None]
  - PAIN [None]
  - GENERAL PHYSICAL HEALTH DETERIORATION [None]
  - DYSPNOEA [None]
